FAERS Safety Report 6654435-7 (Version None)
Quarter: 2010Q1

REPORT INFORMATION
  Report Type: 
  Country: None (occurrence: None)
  Receive Date: 20100326
  Receipt Date: 20100318
  Transmission Date: 20100710
  Serious: Yes (Other)
  Sender: FDA-Public Use
  Company Number: IT-JNJFOC-20100306182

PATIENT
  Sex: Female

DRUGS (1)
  1. TOPAMAX [Suspect]
     Indication: ELECTROENCEPHALOGRAM ABNORMAL
     Route: 048

REACTIONS (4)
  - AMNESIA [None]
  - COLOUR BLINDNESS [None]
  - SPEECH DISORDER [None]
  - VERTIGO [None]
